FAERS Safety Report 21934440 (Version 2)
Quarter: 2023Q4

REPORT INFORMATION
  Report Type: Spontaneous
  Country: HU (occurrence: HU)
  Receive Date: 20230201
  Receipt Date: 20231010
  Transmission Date: 20240109
  Serious: Yes (Other)
  Sender: FDA-Public Use
  Company Number: HU-SUN PHARMACEUTICAL INDUSTRIES LTD-2023R1-376123

PATIENT
  Age: 29 Year
  Sex: Female
  Weight: 66 kg

DRUGS (3)
  1. OCTREOTIDE [Suspect]
     Active Substance: OCTREOTIDE
     Indication: Hyperinsulinaemic hypoglycaemia
     Dosage: 25 MICROGRAM, TID
     Route: 058
  2. OCTREOTIDE [Suspect]
     Active Substance: OCTREOTIDE
     Dosage: 50 MICROGRAM, TID
     Route: 058
  3. OCTREOTIDE [Suspect]
     Active Substance: OCTREOTIDE
     Dosage: 100 MICROGRAM, TID
     Route: 058

REACTIONS (4)
  - Hypoglycaemia [Unknown]
  - Maternal exposure during pregnancy [Unknown]
  - Live birth [Unknown]
  - Maternal exposure during breast feeding [Unknown]
